FAERS Safety Report 8906260 (Version 1)
Quarter: 2012Q4

REPORT INFORMATION
  Report Type: Spontaneous
  Country: GB (occurrence: None)
  Receive Date: 20121107
  Receipt Date: 20121107
  Transmission Date: 20130627
  Serious: Yes (Other)
  Sender: FDA-Public Use
  Company Number: GER/UKI/12/0026468

PATIENT
  Age: 73 Year
  Sex: Female
  Weight: 60.33 kg

DRUGS (6)
  1. AMLODIPINE [Suspect]
     Dosage: 1 in  1 D
     Route: 048
     Dates: start: 20121010, end: 20121012
  2. ADCAL D3 (LEKOVIT CA) [Concomitant]
  3. ATORVASTATIN (ATORVASTATIN) [Concomitant]
  4. SIMVASTATIN (SIMVASTATIN) [Concomitant]
  5. BEDRANOL (PROPRANOLOL HYDROCHLORIDE) [Concomitant]
  6. FELODIPINE (FELODIPINE) [Concomitant]

REACTIONS (7)
  - Balance disorder [None]
  - Headache [None]
  - Myalgia [None]
  - Arthralgia [None]
  - Pain in extremity [None]
  - Hypotonia [None]
  - Gait disturbance [None]
